FAERS Safety Report 8547588-7 (Version None)
Quarter: 2012Q3

REPORT INFORMATION
  Report Type: 
  Country: None (occurrence: None)
  Receive Date: 20120727
  Receipt Date: 20120405
  Transmission Date: 20120928
  Serious: No
  Sender: FDA-Public Use
  Company Number: US-ASTRAZENECA-2012SE22628

PATIENT
  Age: 59 Year
  Sex: Female
  Weight: 122.5 kg

DRUGS (8)
  1. SEROQUEL [Suspect]
     Indication: BIPOLAR DISORDER
     Dosage: 200-250 MG, ONCE A DAY AT NIGHT
     Route: 048
  2. HYZAAR [Concomitant]
     Indication: HYPERTENSION
     Dosage: 125/25 MG, EVERY DAY
     Route: 048
  3. DEPAKOTE [Concomitant]
     Indication: BIPOLAR DISORDER
     Route: 048
  4. LAMICTAO [Concomitant]
     Indication: BIPOLAR DISORDER
     Route: 048
  5. GENERIC ZANTAC [Concomitant]
     Indication: GASTROOESOPHAGEAL REFLUX DISEASE
     Dosage: AS REQUIRED
     Route: 048
  6. GENERIC MOBIC [Concomitant]
     Indication: ARTHRITIS
     Route: 048
  7. ANTIVERT [Concomitant]
     Indication: VESTIBULAR DISORDER
     Route: 048
  8. ATENOLOL [Concomitant]
     Indication: HYPERTENSION
     Route: 048

REACTIONS (2)
  - VESTIBULAR DISORDER [None]
  - DYSARTHRIA [None]
